FAERS Safety Report 4449231-5 (Version None)
Quarter: 2004Q3

REPORT INFORMATION
  Report Type: 
  Country: None (occurrence: None)
  Receive Date: 20040910
  Receipt Date: 20040825
  Transmission Date: 20050211
  Serious: Yes (Hospitalization)
  Sender: FDA-Public Use
  Company Number: 2004-BP-01541NB

PATIENT
  Age: 70 Year
  Sex: Female

DRUGS (24)
  1. BI-SIFROL TABLETS (PRAMIPEXOLE DIHYDROCHLORIDE) (TA) (PRAMIPEXOLE) [Suspect]
     Indication: PARKINSON'S DISEASE
     Dosage: 1.5 MG (0.5MG) PO
     Route: 048
     Dates: start: 20040205, end: 20040301
  2. VOLTAREN-XR [Suspect]
     Indication: SPONDYLOSIS
     Dosage: 75 MG PO
     Route: 048
     Dates: start: 20030924, end: 20040301
  3. CEFZON (CEFDINIR) (KA) [Suspect]
     Indication: CONTUSION
     Dosage: 300 MG PO
     Route: 048
     Dates: start: 20040204, end: 20040301
  4. MUCOSTA (REBAMIPIDE) (TA) [Suspect]
     Indication: GASTROINTESTINAL DISORDER
     Dosage: 300 MG PO
     Route: 048
     Dates: start: 20040204, end: 20040301
  5. MUCOSTA (REBAMIPIDE) (TA) [Suspect]
     Indication: PROPHYLAXIS
     Dosage: 300 MG PO
     Route: 048
     Dates: start: 20040204, end: 20040301
  6. EC DOPARL (MADOPAR) [Concomitant]
  7. FP [Concomitant]
  8. DEPAS (ETIZOLAM) [Concomitant]
  9. NAUZELIN (DOMPERIDONE) [Concomitant]
  10. ALFAROL (ALFACALCIDOL) [Concomitant]
  11. NIZATIDINE [Concomitant]
  12. SENNOSIDE [Concomitant]
  13. BIOFERMIN (BIOFERMIN) [Concomitant]
  14. DIART (AZOSEMIDE) [Concomitant]
  15. MOHRUS TAPE [Concomitant]
  16. ADOFEED (FLURBIPROFEN) [Concomitant]
  17. ELCITONIN (ELCATONIN) [Concomitant]
  18. NEUROTROPIN (ORGAN LYSATE, STANDARDIZED) [Concomitant]
  19. GLAKAY (MENATETRENONE) [Concomitant]
  20. ASPARA-CA (ASPARTATE CALCIUM) [Concomitant]
  21. GENTACIN (GENTAMICIN SULFATE) [Concomitant]
  22. ISODINE (POVIDONE-IODINE) [Concomitant]
  23. GLYCERIN (GLYCEROL) [Concomitant]
  24. LECICARBON (LECICARBON) [Concomitant]

REACTIONS (6)
  - CONDITION AGGRAVATED [None]
  - CONSTIPATION [None]
  - DYSPEPSIA [None]
  - NEPHROTIC SYNDROME [None]
  - RENAL FAILURE ACUTE [None]
  - WEIGHT INCREASED [None]
